FAERS Safety Report 5423895-1 (Version None)
Quarter: 2007Q3

REPORT INFORMATION
  Report Type: 
  Country: None (occurrence: None)
  Receive Date: 20070823
  Receipt Date: 20070814
  Transmission Date: 20080115
  Serious: Yes (Death, Life-Threatening, Hospitalization)
  Sender: FDA-Public Use
  Company Number: BE-AMGEN-UK216724

PATIENT
  Sex: Male

DRUGS (10)
  1. PANITUMUMAB [Suspect]
     Indication: COLORECTAL CANCER
     Route: 042
     Dates: start: 20061017, end: 20070321
  2. OXALIPLATIN [Suspect]
  3. 5-FU [Suspect]
  4. ZOFRAN [Concomitant]
     Dates: start: 20061017
  5. ZOLPIDEM TARTRATE [Concomitant]
     Dates: start: 20070124
  6. PROVERA [Concomitant]
     Dates: start: 20070201
  7. METRONIDAZOLE [Concomitant]
     Dates: start: 20070201
  8. ESCITALOPRAM OXALATE [Concomitant]
     Dates: start: 20070207
  9. MAGNESIUM SULFATE [Concomitant]
  10. ZINC [Concomitant]
     Route: 042
     Dates: start: 20070201

REACTIONS (6)
  - ACUTE RESPIRATORY DISTRESS SYNDROME [None]
  - EMBOLISM [None]
  - GENERAL PHYSICAL HEALTH DETERIORATION [None]
  - HYPOXIA [None]
  - MULTI-ORGAN FAILURE [None]
  - PNEUMONIA [None]
